FAERS Safety Report 6235984-2 (Version None)
Quarter: 2009Q2

REPORT INFORMATION
  Report Type: 
  Country: None (occurrence: None)
  Receive Date: 20090617
  Receipt Date: 20090617
  Transmission Date: 20091009
  Serious: No
  Sender: FDA-Public Use
  Company Number: None

PATIENT
  Sex: Female
  Weight: 89.3586 kg

DRUGS (2)
  1. ZICAM GEL AND SWABS MATRIXX [Suspect]
     Indication: NASOPHARYNGITIS
     Dosage: ONE SPRAY IN EA. NOSTRIL 4-6 TIMES PER DAY NASAL  SEVERAL TIMES 06-09
     Route: 045
  2. . [Concomitant]

REACTIONS (5)
  - ANOSMIA [None]
  - ANXIETY [None]
  - DEPRESSION [None]
  - NASAL DISCOMFORT [None]
  - OBSESSIVE-COMPULSIVE DISORDER [None]
